FAERS Safety Report 17435527 (Version 1)
Quarter: 2020Q1

REPORT INFORMATION
  Report Type: Spontaneous
  Country: US (occurrence: US)
  Receive Date: 20200219
  Receipt Date: 20200219
  Transmission Date: 20200409
  Serious: No
  Sender: FDA-Public Use
  Company Number: US-009507513-2002USA006919

PATIENT
  Age: 69 Year
  Sex: Female

DRUGS (2)
  1. SIMVASTATIN TABLETS, USP [Suspect]
     Active Substance: SIMVASTATIN
     Dosage: UNK
  2. XELJANZ [Suspect]
     Active Substance: TOFACITINIB CITRATE
     Indication: RHEUMATOID ARTHRITIS
     Dosage: 11 MILLIGRAM, DAILY BY MOUTH
     Route: 048
     Dates: start: 201912

REACTIONS (1)
  - Blood cholesterol abnormal [Unknown]

NARRATIVE: CASE EVENT DATE: 201912
